FAERS Safety Report 18478031 (Version 1)
Quarter: 2020Q4

REPORT INFORMATION
  Report Type: Other
  Country: CA (occurrence: CA)
  Receive Date: 20201108
  Receipt Date: 20201108
  Transmission Date: 20210114
  Serious: Yes (Other)
  Sender: FDA-Public Use
  Company Number: CA-CELLTRION INC.-2020CA030477

PATIENT

DRUGS (37)
  1. PREDNISONE. [Suspect]
     Active Substance: PREDNISONE
     Indication: RHEUMATOID ARTHRITIS
  2. HYDROXYZINE [Concomitant]
     Active Substance: HYDROXYZINE HYDROCHLORIDE
     Dosage: 10.0 MILLIGRAM, 2 EVERY 1 DAY
     Route: 065
  3. OMEPRAZOLE. [Concomitant]
     Active Substance: OMEPRAZOLE
     Dosage: 20.0 MILLIGRAM, 2 EVERY 1 DAY
     Route: 065
  4. RITUXIMAB (UNKNOWN) [Suspect]
     Active Substance: RITUXIMAB
     Indication: SYSTEMIC LUPUS ERYTHEMATOSUS
     Dosage: 1000.0 MILLIGRAM
     Route: 042
  5. MYCOPHENOLATE MOFETIL. [Suspect]
     Active Substance: MYCOPHENOLATE MOFETIL
     Indication: RHEUMATOID ARTHRITIS
     Dosage: 500.0 MILLIGRAM, 2 EVERY 1 DAY
     Route: 065
  6. SULFASALAZINE. [Suspect]
     Active Substance: SULFASALAZINE
     Indication: RHEUMATOID ARTHRITIS
     Dosage: 1.5 GRAM
     Route: 065
  7. METFORMIN [Concomitant]
     Active Substance: METFORMIN HYDROCHLORIDE
     Dosage: 500.0 MILLIGRAM, 2 EVERY 1 DAY
     Route: 065
  8. VITAMIN B6 [Concomitant]
     Active Substance: PYRIDOXINE HYDROCHLORIDE
     Dosage: 100.0 MILLIGRAM
     Route: 065
  9. RITUXIMAB (UNKNOWN) [Suspect]
     Active Substance: RITUXIMAB
     Indication: POLYMYOSITIS
     Dosage: UNK
     Route: 065
  10. ACETAMINOPHEN. [Concomitant]
     Active Substance: ACETAMINOPHEN
     Indication: PREMEDICATION
     Dosage: 2 EVERY 1 DAY
     Route: 065
  11. RITUXIMAB (UNKNOWN) [Suspect]
     Active Substance: RITUXIMAB
     Dosage: 1000.0 MILLIGRAM
     Route: 042
  12. RITUXIMAB (UNKNOWN) [Suspect]
     Active Substance: RITUXIMAB
     Dosage: UNK
     Route: 065
  13. RITUXIMAB (UNKNOWN) [Suspect]
     Active Substance: RITUXIMAB
     Dosage: UNK
     Route: 065
  14. MYCOPHENOLATE MOFETIL. [Suspect]
     Active Substance: MYCOPHENOLATE MOFETIL
     Indication: MYOSITIS
  15. PREDNISONE. [Suspect]
     Active Substance: PREDNISONE
     Indication: MYOSITIS
  16. PREDNISONE. [Suspect]
     Active Substance: PREDNISONE
     Indication: VASCULITIS
     Dosage: 10.0 MILLIGRAM, 1 EVERY 1 DAY
     Route: 048
  17. PREDNISONE. [Suspect]
     Active Substance: PREDNISONE
     Indication: MYOSITIS
  18. JANUVIA [Concomitant]
     Active Substance: SITAGLIPTIN PHOSPHATE
     Dosage: 100.0 MILLIGRAM, 1 EVERY 1 DAY
     Route: 065
  19. CRESTOR [Concomitant]
     Active Substance: ROSUVASTATIN CALCIUM
  20. JANUMET [Concomitant]
     Active Substance: METFORMIN HYDROCHLORIDE\SITAGLIPTIN PHOSPHATE
  21. RITUXIMAB (UNKNOWN) [Suspect]
     Active Substance: RITUXIMAB
     Indication: MIXED CONNECTIVE TISSUE DISEASE
     Dosage: UNK
     Route: 065
  22. RITUXIMAB (UNKNOWN) [Suspect]
     Active Substance: RITUXIMAB
     Dosage: UNK
     Route: 065
  23. MYCOPHENOLATE MOFETIL. [Suspect]
     Active Substance: MYCOPHENOLATE MOFETIL
     Indication: RHEUMATOID ARTHRITIS
     Route: 065
  24. MYCOPHENOLATE MOFETIL. [Suspect]
     Active Substance: MYCOPHENOLATE MOFETIL
     Indication: MYOSITIS
  25. PREDNISONE. [Suspect]
     Active Substance: PREDNISONE
     Indication: VASCULITIS
     Dosage: 9.0 MILLIGRAM, 1 EVERY 1 DAY
     Route: 065
  26. DEMEROL [Concomitant]
     Active Substance: MEPERIDINE HYDROCHLORIDE
  27. PLAQUENIL S [Concomitant]
     Active Substance: HYDROXYCHLOROQUINE SULFATE
     Indication: RHEUMATOID ARTHRITIS
     Dosage: 200.0 MILLIGRAM, 2 EVERY 1 DAY
     Route: 048
  28. SYNTHROID [Concomitant]
     Active Substance: LEVOTHYROXINE SODIUM
     Dosage: 0.125 MILLIGRAM
     Route: 065
  29. FOLIC ACID. [Concomitant]
     Active Substance: FOLIC ACID
     Dosage: 1.0 MILLIGRAM
     Route: 065
  30. MELOXICAM. [Concomitant]
     Active Substance: MELOXICAM
     Dosage: 15.0 MILLIGRAM
     Route: 065
  31. RITUXIMAB (UNKNOWN) [Suspect]
     Active Substance: RITUXIMAB
     Indication: RHEUMATOID ARTHRITIS
     Dosage: UNK
     Route: 065
  32. PREDNISONE. [Suspect]
     Active Substance: PREDNISONE
     Indication: RHEUMATOID ARTHRITIS
     Dosage: UNK
     Route: 065
  33. DIPHENHYDRAMINE. [Concomitant]
     Active Substance: DIPHENHYDRAMINE
     Indication: PREMEDICATION
     Dosage: 50.0 MILLIGRAM
     Route: 048
  34. DOCUSATE SODIUM. [Concomitant]
     Active Substance: DOCUSATE SODIUM
     Dosage: 2 EVERY 1 DAY
     Route: 065
  35. DOMPERIDONE [Concomitant]
     Active Substance: DOMPERIDONE
     Dosage: 20.0 MILLIGRAM
     Route: 065
  36. METHYLPREDNISOLONE. [Concomitant]
     Active Substance: METHYLPREDNISOLONE
     Indication: PREMEDICATION
     Dosage: 100.0 MILLIGRAM
     Route: 042
  37. PERINDOPRIL [Concomitant]
     Active Substance: PERINDOPRIL

REACTIONS (48)
  - Aortic valve stenosis [Not Recovered/Not Resolved]
  - Asthma [Not Recovered/Not Resolved]
  - Dysphagia [Not Recovered/Not Resolved]
  - Vertigo [Not Recovered/Not Resolved]
  - Blood pressure fluctuation [Not Recovered/Not Resolved]
  - Chest pain [Not Recovered/Not Resolved]
  - Dyspnoea [Not Recovered/Not Resolved]
  - Nasal congestion [Not Recovered/Not Resolved]
  - Drug ineffective [Not Recovered/Not Resolved]
  - Constipation [Not Recovered/Not Resolved]
  - Stoma site erythema [Not Recovered/Not Resolved]
  - Abdominal pain [Not Recovered/Not Resolved]
  - Abdominal pain upper [Not Recovered/Not Resolved]
  - Infusion related reaction [Not Recovered/Not Resolved]
  - Dupuytren^s contracture [Not Recovered/Not Resolved]
  - Middle insomnia [Not Recovered/Not Resolved]
  - Sleep disorder [Not Recovered/Not Resolved]
  - Hypoaesthesia [Not Recovered/Not Resolved]
  - Off label use [Not Recovered/Not Resolved]
  - Aortic stenosis [Not Recovered/Not Resolved]
  - Cushingoid [Not Recovered/Not Resolved]
  - Dry eye [Not Recovered/Not Resolved]
  - Skin tightness [Not Recovered/Not Resolved]
  - Back pain [Not Recovered/Not Resolved]
  - Cough [Not Recovered/Not Resolved]
  - Influenza [Not Recovered/Not Resolved]
  - Hyperhidrosis [Not Recovered/Not Resolved]
  - Tooth injury [Not Recovered/Not Resolved]
  - Arthralgia [Not Recovered/Not Resolved]
  - Helicobacter infection [Not Recovered/Not Resolved]
  - Nasopharyngitis [Not Recovered/Not Resolved]
  - Blood pressure diastolic abnormal [Not Recovered/Not Resolved]
  - Joint swelling [Not Recovered/Not Resolved]
  - Campylobacter infection [Not Recovered/Not Resolved]
  - Fatigue [Not Recovered/Not Resolved]
  - Immunosuppression [Not Recovered/Not Resolved]
  - Intentional product use issue [Not Recovered/Not Resolved]
  - Carpal tunnel syndrome [Not Recovered/Not Resolved]
  - Cervical vertebral fracture [Not Recovered/Not Resolved]
  - Dry mouth [Not Recovered/Not Resolved]
  - Oxygen saturation decreased [Not Recovered/Not Resolved]
  - Dizziness [Not Recovered/Not Resolved]
  - Chondrocalcinosis pyrophosphate [Not Recovered/Not Resolved]
  - Systemic lupus erythematosus rash [Not Recovered/Not Resolved]
  - Cystitis [Not Recovered/Not Resolved]
  - Diarrhoea [Not Recovered/Not Resolved]
  - Nausea [Not Recovered/Not Resolved]
  - Vomiting [Not Recovered/Not Resolved]
